FAERS Safety Report 9364872 (Version 1)
Quarter: 2013Q2

REPORT INFORMATION
  Report Type: Report from Study
  Country: US (occurrence: US)
  Receive Date: 20130624
  Receipt Date: 20130624
  Transmission Date: 20140414
  Serious: Yes (Hospitalization)
  Sender: FDA-Public Use
  Company Number: US-GLAXOSMITHKLINE-A1028173A

PATIENT
  Age: 74 Year
  Sex: Female
  Weight: 51.2 kg

DRUGS (7)
  1. LAPATINIB [Suspect]
     Indication: TRANSITIONAL CELL CARCINOMA
     Dosage: 1250MG PER DAY
     Route: 048
     Dates: start: 20130611
  2. DOCETAXEL [Suspect]
     Indication: TRANSITIONAL CELL CARCINOMA
     Dosage: 75MG EVERY 3 WEEKS
     Route: 042
     Dates: start: 20130611
  3. LOSARTAN [Concomitant]
     Dates: start: 2012
  4. PRILOSEC [Concomitant]
     Dates: start: 2012
  5. SIMVASTATIN [Concomitant]
     Dates: start: 2012
  6. VICODIN [Concomitant]
     Dates: start: 2013
  7. SENNA [Concomitant]
     Dates: start: 2012

REACTIONS (4)
  - Nausea [Unknown]
  - Diarrhoea [Unknown]
  - Dehydration [Unknown]
  - Neutrophil count [Unknown]
